FAERS Safety Report 24077589 (Version 1)
Quarter: 2024Q3

REPORT INFORMATION
  Report Type: Spontaneous
  Country: US (occurrence: US)
  Receive Date: 20240711
  Receipt Date: 20240711
  Transmission Date: 20241016
  Serious: Yes (Death)
  Sender: ROCHE
  Company Number: ROCHE-RCA5153258

PATIENT

DRUGS (1)
  1. HEMLIBRA [Suspect]
     Active Substance: EMICIZUMAB-KXWH
     Indication: Product used for unknown indication
     Route: 065

REACTIONS (3)
  - Cerebral haemorrhage [Fatal]
  - Cerebrovascular accident [Fatal]
  - Hypertension [Fatal]
